FAERS Safety Report 4569474-X (Version None)
Quarter: 2005Q1

REPORT INFORMATION
  Report Type: 
  Country: None (occurrence: None)
  Receive Date: 20050201
  Receipt Date: 20050127
  Transmission Date: 20050727
  Serious: Yes (Hospitalization, Other)
  Sender: FDA-Public Use
  Company Number: 0500003EN0010P

PATIENT
  Age: 10 Year
  Sex: Male

DRUGS (1)
  1. ADAGEN (PEGADEMASE BOVINE) [Suspect]
     Indication: COMBINED IMMUNODEFICIENCY
     Dates: start: 19950101

REACTIONS (2)
  - CENTRAL NERVOUS SYSTEM LYMPHOMA [None]
  - UNEVALUABLE EVENT [None]
